FAERS Safety Report 16637967 (Version 1)
Quarter: 2019Q3

REPORT INFORMATION
  Report Type: Spontaneous
  Country: FR (occurrence: FR)
  Receive Date: 20190726
  Receipt Date: 20190726
  Transmission Date: 20191004
  Serious: Yes (Life-Threatening, Hospitalization)
  Sender: FDA-Public Use
  Company Number: FR-TEVA-2019-FR-1082531

PATIENT
  Age: 44 Year
  Sex: Male

DRUGS (8)
  1. PEGASYS 135 MICROGRAMMES, SOLUTION INJECTABLE [Concomitant]
     Indication: CHRONIC HEPATITIS B
     Dosage: 1 DOSAGE FORMS PER WEEK
     Route: 058
  2. TOPALGIC L.P. 100 MG, COMPRIME A LIBERATION PROLONGEE [Suspect]
     Active Substance: TRAMADOL HYDROCHLORIDE
     Indication: PAIN
     Dosage: 4 DOSAGE FORMS
     Route: 048
  3. INNOHEP [Concomitant]
     Active Substance: TINZAPARIN SODIUM
     Indication: VENOUS THROMBOSIS
     Dosage: 1 DOSAGE FORMS
     Route: 058
  4. XANAX [Concomitant]
     Active Substance: ALPRAZOLAM
     Indication: ANXIETY
     Dosage: 3 DOSAGE FORMS
     Route: 048
  5. FENTANYL. [Suspect]
     Active Substance: FENTANYL
     Indication: PAIN
     Dosage: 75 MICROGRAM
     Route: 062
     Dates: start: 20190617, end: 20190618
  6. PROPRANOLOL [Concomitant]
     Active Substance: PROPRANOLOL HYDROCHLORIDE
     Indication: HYPERTENSION
     Dosage: 160 MILLIGRAM
     Route: 048
  7. INEXIUM 20 MG, COMPRIME GASTRO-RESISTANT [Concomitant]
     Active Substance: ESOMEPRAZOLE
     Indication: GASTROOESOPHAGEAL REFLUX DISEASE
     Dosage: 1 DOSAGE FORMS
     Route: 048
  8. VIREAD 245 MG, COMPRIME PELLICULE [Concomitant]
     Indication: CHRONIC HEPATITIS B
     Dosage: 1 DOSAGE FORMS
     Route: 048

REACTIONS (7)
  - Drug interaction [Recovered/Resolved]
  - Product administration error [Recovered/Resolved]
  - Product communication issue [Recovered/Resolved]
  - Wrong technique in product usage process [Recovered/Resolved]
  - Coma [Recovered/Resolved]
  - Wrong strength [Recovered/Resolved]
  - Miosis [Recovered/Resolved]

NARRATIVE: CASE EVENT DATE: 20190617
